FAERS Safety Report 8166952-1 (Version None)
Quarter: 2012Q1

REPORT INFORMATION
  Report Type: 
  Country: None (occurrence: None)
  Receive Date: 20120227
  Receipt Date: 20120220
  Transmission Date: 20120608
  Serious: Yes (Hospitalization)
  Sender: FDA-Public Use
  Company Number: IT-ASTELLAS-2011EU003356

PATIENT
  Sex: Female

DRUGS (10)
  1. AMIODARONE HCL [Concomitant]
     Dosage: UNK G, UNK
     Route: 065
  2. MICAFUNGIN INJECTION [Suspect]
     Indication: SYSTEMIC CANDIDA
     Dosage: 100 MG, UNKNOWN/D
     Route: 042
     Dates: start: 20110526, end: 20110526
  3. ALBUMIN (HUMAN) [Concomitant]
     Dosage: 100 ML, BID
     Route: 065
     Dates: start: 20110523, end: 20110527
  4. ACETAMINOPHEN [Concomitant]
     Dosage: UNK
     Route: 065
  5. COLIMICINA [Concomitant]
     Dosage: 9 DF, UNKNOWN/D
     Route: 065
     Dates: start: 20110526, end: 20110527
  6. OMEPRAZOLE [Concomitant]
     Dosage: 40 MG, UNKNOWN/D
     Route: 042
     Dates: start: 20110523
  7. AMIODARONE HCL [Concomitant]
     Dosage: 300 MG, UNKNOWN/D
     Route: 065
     Dates: start: 20110525, end: 20110527
  8. MEROPENEM [Concomitant]
     Dosage: 1 G, TID
     Route: 065
     Dates: start: 20110525, end: 20110527
  9. ENOXAPARIN [Concomitant]
     Dosage: 6000 IU, BID
     Route: 065
     Dates: start: 20110523, end: 20110527
  10. LISINOPRIL [Concomitant]
     Dosage: UNK
     Route: 065
     Dates: start: 20110523

REACTIONS (2)
  - CYTOLYTIC HEPATITIS [None]
  - CHOLESTASIS [None]
